FAERS Safety Report 7281559-6 (Version None)
Quarter: 2011Q1

REPORT INFORMATION
  Report Type: 
  Country: None (occurrence: None)
  Receive Date: 20110208
  Receipt Date: 20110126
  Transmission Date: 20110831
  Serious: Yes (Hospitalization)
  Sender: FDA-Public Use
  Company Number: PHHY2011US06098

PATIENT
  Age: 64 Year
  Sex: Female
  Weight: 83.9 kg

DRUGS (2)
  1. NORVASC [Suspect]
     Indication: HYPERTENSION
     Dosage: UNK
     Route: 048
     Dates: start: 20010101
  2. DIOVAN [Suspect]

REACTIONS (9)
  - THROAT TIGHTNESS [None]
  - RASH [None]
  - PHARYNGEAL OEDEMA [None]
  - RASH PRURITIC [None]
  - SKIN HAEMORRHAGE [None]
  - HYPOAESTHESIA ORAL [None]
  - URTICARIA [None]
  - SWOLLEN TONGUE [None]
  - DYSPNOEA [None]
